FAERS Safety Report 5444605-8 (Version None)
Quarter: 2007Q3

REPORT INFORMATION
  Report Type: 
  Country: None (occurrence: None)
  Receive Date: 20070830
  Receipt Date: 20070817
  Transmission Date: 20080115
  Serious: Yes (Other)
  Sender: FDA-Public Use
  Company Number: CHNY2007BR02922

PATIENT
  Age: 6 Year
  Sex: Male
  Weight: 24 kg

DRUGS (8)
  1. CALCIUM-SANDOZ FORTE + FORTISSIMUM (NCH)(CALCIUM LACTATE GLUCONATE, CA [Suspect]
     Dosage: 1 DF, QD, ORAL
     Route: 048
     Dates: start: 20070815
  2. SORCAL (CALCIUM POLYSTYRENE SULFONATE) [Concomitant]
  3. SODIUM CHLORIDE 0.9% [Concomitant]
  4. SODIUM CITRATE [Concomitant]
  5. RIVITAL JUNIOR [Concomitant]
  6. ATROVENT [Concomitant]
  7. PUMOSEINA [Concomitant]
  8. COLISTIN (COLISTIN) [Concomitant]

REACTIONS (7)
  - ABDOMINAL DISTENSION [None]
  - ANXIETY [None]
  - DIARRHOEA [None]
  - HYPERHIDROSIS [None]
  - HYPONATRAEMIA [None]
  - VOMITING [None]
  - WEIGHT DECREASED [None]
